FAERS Safety Report 19652900 (Version 1)
Quarter: 2021Q3

REPORT INFORMATION
  Report Type: Report from Study
  Country: PK (occurrence: PK)
  Receive Date: 20210803
  Receipt Date: 20210803
  Transmission Date: 20211014
  Serious: Yes (Death)
  Sender: FDA-Public Use
  Company Number: NVSC2021PK174612

PATIENT
  Sex: Female
  Weight: 74 kg

DRUGS (1)
  1. KISQALI [Suspect]
     Active Substance: RIBOCICLIB
     Indication: BREAST CANCER METASTATIC
     Dosage: 600 MG, QD (3XOD)
     Route: 048
     Dates: start: 20181215, end: 20201204

REACTIONS (3)
  - Breast cancer metastatic [Fatal]
  - Malignant neoplasm progression [Fatal]
  - Vomiting [Fatal]
